FAERS Safety Report 17735657 (Version 3)
Quarter: 2021Q1

REPORT INFORMATION
  Report Type: Spontaneous
  Country: BR (occurrence: BR)
  Receive Date: 20200501
  Receipt Date: 20210313
  Transmission Date: 20210419
  Serious: Yes (Hospitalization, Other)
  Sender: FDA-Public Use
  Company Number: NVSC2020BR117463

PATIENT
  Age: 63 Year
  Sex: Female
  Weight: 70 kg

DRUGS (6)
  1. MIOSAN [Concomitant]
     Active Substance: CYCLOBENZAPRINE
     Indication: FIBROMYALGIA
     Dosage: 1 DF, QD
     Route: 048
  2. MIOSAN [Concomitant]
     Active Substance: CYCLOBENZAPRINE
     Indication: BURSITIS
  3. ESTRADOT [Suspect]
     Active Substance: ESTRADIOL
     Dosage: 50 UG, 8 SIST
     Route: 062
  4. MIOSAN [Concomitant]
     Active Substance: CYCLOBENZAPRINE
     Indication: TENDONITIS
  5. ESTRADOT [Suspect]
     Active Substance: ESTRADIOL
     Indication: MENOPAUSE
     Dosage: 100 MCG ONE PATCH, EVERY 7 DAYS
     Route: 062
     Dates: start: 2013, end: 202012
  6. ESTRADOT [Suspect]
     Active Substance: ESTRADIOL
     Dosage: 100 UG, 8 SIST
     Route: 062
     Dates: start: 20200424, end: 20200427

REACTIONS (10)
  - Feeling hot [Not Recovered/Not Resolved]
  - Insomnia [Not Recovered/Not Resolved]
  - Feeling of despair [Recovered/Resolved]
  - Hypertension [Not Recovered/Not Resolved]
  - Pneumonia [Recovered/Resolved]
  - Diabetes mellitus [Recovered/Resolved]
  - Product adhesion issue [Not Recovered/Not Resolved]
  - Drug dependence [Not Recovered/Not Resolved]
  - Blood cholesterol increased [Not Recovered/Not Resolved]
  - Product availability issue [Not Recovered/Not Resolved]

NARRATIVE: CASE EVENT DATE: 20200424
